FAERS Safety Report 21335748 (Version 2)
Quarter: 2022Q4

REPORT INFORMATION
  Report Type: Spontaneous
  Country: US (occurrence: US)
  Receive Date: 20220915
  Receipt Date: 20221011
  Transmission Date: 20230113
  Serious: No
  Sender: FDA-Public Use
  Company Number: US-ALK-ABELLO A/S-2022AA002736

PATIENT

DRUGS (23)
  1. POPULUS DELTOIDES POLLEN [Suspect]
     Active Substance: POPULUS DELTOIDES POLLEN
     Indication: Product used for unknown indication
     Dosage: UNK
     Dates: start: 20220214, end: 20220906
  2. ACER NEGUNDO POLLEN [Suspect]
     Active Substance: ACER NEGUNDO POLLEN
     Indication: Product used for unknown indication
     Dosage: UNK
     Dates: start: 20220214, end: 20220906
  3. PLANTAGO LANCEOLATA POLLEN [Suspect]
     Active Substance: PLANTAGO LANCEOLATA POLLEN
     Indication: Product used for unknown indication
     Dosage: UNK
     Dates: start: 20220214, end: 20220906
  4. DERMATOPHAGOIDES PTERONYSSINUS [Suspect]
     Active Substance: DERMATOPHAGOIDES PTERONYSSINUS
     Indication: Product used for unknown indication
     Dosage: UNK
     Dates: start: 20220214, end: 20220906
  5. DERMATOPHAGOIDES FARINAE [Suspect]
     Active Substance: DERMATOPHAGOIDES FARINAE
     Indication: Product used for unknown indication
     Dosage: UNK
     Dates: start: 20220214, end: 20220906
  6. PLATANUS OCCIDENTALIS POLLEN [Suspect]
     Active Substance: PLATANUS OCCIDENTALIS POLLEN
     Indication: Product used for unknown indication
     Dosage: UNK
     Dates: start: 20220214, end: 20220906
  7. RUMEX ACETOSELLA POLLEN [Suspect]
     Active Substance: RUMEX ACETOSELLA POLLEN
     Indication: Product used for unknown indication
     Dosage: UNK
     Dates: start: 20220214, end: 20220906
  8. FELIS CATUS HAIR [Suspect]
     Active Substance: FELIS CATUS HAIR
     Indication: Product used for unknown indication
     Dosage: UNK
     Dates: start: 20220214, end: 20220906
  9. QUERCUS ALBA POLLEN [Suspect]
     Active Substance: QUERCUS ALBA POLLEN
     Indication: Product used for unknown indication
     Dosage: UNK
     Dates: start: 20220214, end: 20220906
  10. JUNIPERUS ASHEI POLLEN [Suspect]
     Active Substance: JUNIPERUS ASHEI POLLEN
     Indication: Product used for unknown indication
     Dosage: UNK
     Dates: start: 20220214, end: 20220906
  11. AMBROSIA ARTEMISIIFOLIA POLLEN [Suspect]
     Active Substance: AMBROSIA ARTEMISIIFOLIA POLLEN
     Indication: Product used for unknown indication
     Dosage: UNK
     Dates: start: 20220214, end: 20220906
  12. FRAXINUS AMERICANA POLLEN [Suspect]
     Active Substance: FRAXINUS AMERICANA POLLEN
     Indication: Product used for unknown indication
     Dosage: UNK
     Dates: start: 20220214, end: 20220906
  13. PHLEUM PRATENSE POLLEN [Suspect]
     Active Substance: PHLEUM PRATENSE POLLEN
     Indication: Product used for unknown indication
     Dosage: UNK
     Dates: start: 20220214, end: 20220906
  14. CYNODON DACTYLON POLLEN [Suspect]
     Active Substance: CYNODON DACTYLON POLLEN
     Indication: Product used for unknown indication
     Dosage: UNK
     Dates: start: 20220214, end: 20220906
  15. SORGHUM HALEPENSE POLLEN [Suspect]
     Active Substance: SORGHUM HALEPENSE POLLEN
     Indication: Product used for unknown indication
     Dosage: UNK
     Dates: start: 20220214, end: 20220906
  16. ULMUS AMERICANA POLLEN [Suspect]
     Active Substance: ULMUS AMERICANA POLLEN
     Indication: Product used for unknown indication
     Dosage: UNK
     Dates: start: 20220214, end: 20220906
  17. JUGLANS NIGRA POLLEN [Suspect]
     Active Substance: JUGLANS NIGRA POLLEN
     Indication: Product used for unknown indication
     Dosage: UNK
     Dates: start: 20220214, end: 20220906
  18. BETULA NIGRA POLLEN [Suspect]
     Active Substance: BETULA NIGRA POLLEN
     Indication: Product used for unknown indication
     Dosage: UNK
     Dates: start: 20220214, end: 20220906
  19. CARYA OVATA POLLEN [Suspect]
     Active Substance: CARYA OVATA POLLEN
     Indication: Product used for unknown indication
     Dosage: UNK
     Dates: start: 20220214, end: 20220906
  20. ARTEMISIA TRIDENTATA POLLEN [Suspect]
     Active Substance: ARTEMISIA TRIDENTATA POLLEN
     Indication: Product used for unknown indication
     Dosage: UNK
     Dates: start: 20220214, end: 20220906
  21. ALBUTEROL [Concomitant]
     Active Substance: ALBUTEROL
  22. XYZAL [Concomitant]
     Active Substance: LEVOCETIRIZINE DIHYDROCHLORIDE
  23. SINGULAIR [Concomitant]
     Active Substance: MONTELUKAST SODIUM

REACTIONS (3)
  - Injection site mass [Recovered/Resolved]
  - Injection site erythema [Recovered/Resolved]
  - Injection site reaction [Recovered/Resolved]

NARRATIVE: CASE EVENT DATE: 20220816
